FAERS Safety Report 5076980-0 (Version None)
Quarter: 2006Q3

REPORT INFORMATION
  Report Type: 
  Country: None (occurrence: None)
  Receive Date: 20060810
  Receipt Date: 20060731
  Transmission Date: 20061208
  Serious: Yes (Hospitalization)
  Sender: FDA-Public Use
  Company Number: FR-GLAXOSMITHKLINE-B0433225A

PATIENT
  Age: 22 Year
  Sex: Male
  Weight: 89 kg

DRUGS (11)
  1. ZANTAC [Suspect]
     Route: 042
     Dates: start: 20060614, end: 20060706
  2. HYDROCORTISONE TAB [Suspect]
     Indication: ACUTE MYELOID LEUKAEMIA
     Dosage: 50MG CYCLIC
     Route: 037
     Dates: start: 20060421, end: 20060627
  3. METHOTREXATE [Suspect]
     Indication: ACUTE MYELOID LEUKAEMIA
     Dosage: 15MG CYCLIC
     Route: 037
     Dates: start: 20060421, end: 20060627
  4. ARACYTINE [Suspect]
     Indication: ACUTE MYELOID LEUKAEMIA
     Dosage: 3GM2 CYCLIC
     Route: 042
     Dates: start: 20060615, end: 20060618
  5. ARACYTINE [Suspect]
     Dosage: 40MG PER DAY
     Route: 037
     Dates: start: 20060421, end: 20060627
  6. TAZOCILLINE [Suspect]
     Indication: PYREXIA
     Dosage: 3UNIT PER DAY
     Route: 042
     Dates: start: 20060624, end: 20060706
  7. FUNGIZONE [Concomitant]
     Route: 048
  8. ARACYTINE [Concomitant]
     Dosage: 430MG PER DAY
     Route: 042
     Dates: start: 20060413, end: 20060420
  9. ZAVEDOS [Concomitant]
     Indication: ACUTE MYELOID LEUKAEMIA
     Dosage: 17MG PER DAY
     Route: 048
     Dates: start: 20060413, end: 20060418
  10. AMSIDINE [Concomitant]
     Indication: ACUTE MYELOID LEUKAEMIA
     Dosage: 150MGM2 PER DAY
     Route: 065
     Dates: start: 20060517, end: 20060521
  11. ARACYTINE [Concomitant]
     Dosage: 50MGM2 CYCLIC
     Dates: start: 20060517, end: 20060521

REACTIONS (11)
  - AGITATION [None]
  - ANXIETY [None]
  - BONE MARROW FAILURE [None]
  - CONVULSION [None]
  - CRYING [None]
  - CSF PROTEIN INCREASED [None]
  - DEPRESSED LEVEL OF CONSCIOUSNESS [None]
  - ENCEPHALOPATHY [None]
  - EUPHORIC MOOD [None]
  - MYDRIASIS [None]
  - SPEECH DISORDER [None]
